FAERS Safety Report 5466329-3 (Version None)
Quarter: 2007Q3

REPORT INFORMATION
  Report Type: 
  Country: None (occurrence: None)
  Receive Date: 20070920
  Receipt Date: 20070911
  Transmission Date: 20080115
  Serious: Yes (Other)
  Sender: FDA-Public Use
  Company Number: 2007BI019338

PATIENT
  Sex: Female

DRUGS (1)
  1. AVONEX [Suspect]
     Indication: MULTIPLE SCLEROSIS
     Dosage: IM
     Route: 030
     Dates: start: 20010430

REACTIONS (5)
  - BLINDNESS [None]
  - DEAFNESS UNILATERAL [None]
  - GAIT DISTURBANCE [None]
  - HEMIANOPIA HOMONYMOUS [None]
  - OPTIC NEUROPATHY [None]
